FAERS Safety Report 5093463-2 (Version None)
Quarter: 2006Q3

REPORT INFORMATION
  Report Type: 
  Country: None (occurrence: None)
  Receive Date: 20060828
  Receipt Date: 20050222
  Transmission Date: 20061208
  Serious: Yes (Other)
  Sender: FDA-Public Use
  Company Number: 10401

PATIENT
  Age: 7 Year
  Sex: Female

DRUGS (4)
  1. METHOTREXATE [Suspect]
     Indication: JUVENILE ARTHRITIS
     Dosage: 9 MG WEEKLY SC
     Route: 058
     Dates: start: 19950101
  2. METHOTREXATE [Suspect]
     Indication: JUVENILE ARTHRITIS
     Dosage: 20 MG WEEKLY SC
     Route: 058
     Dates: end: 20010601
  3. ENBREL [Suspect]
     Indication: JUVENILE ARTHRITIS
     Dosage: 8.75 MG 2/WK SC
     Route: 058
     Dates: start: 20000727, end: 20030201
  4. ENBREL [Suspect]
     Indication: JUVENILE ARTHRITIS
     Dosage: 10.5 MG 2/WK SC
     Route: 058
     Dates: start: 20030201

REACTIONS (2)
  - FULL BLOOD COUNT DECREASED [None]
  - LYMPHOCYTE COUNT DECREASED [None]
